FAERS Safety Report 19241791 (Version 1)
Quarter: 2021Q2

REPORT INFORMATION
  Report Type: Spontaneous
  Country: US (occurrence: US)
  Receive Date: 20210511
  Receipt Date: 20210511
  Transmission Date: 20210717
  Serious: No
  Sender: FDA-Public Use
  Company Number: None

PATIENT
  Age: 44 Year
  Sex: Female
  Weight: 45.2 kg

DRUGS (1)
  1. PACLITAXEL. [Suspect]
     Active Substance: PACLITAXEL
     Indication: NEOPLASM MALIGNANT
     Dosage: ?          OTHER FREQUENCY:ONCE;?
     Route: 041
     Dates: start: 20210510, end: 20210510

REACTIONS (5)
  - Infusion related reaction [None]
  - Oropharyngeal discomfort [None]
  - Cough [None]
  - Chest discomfort [None]
  - Visual impairment [None]

NARRATIVE: CASE EVENT DATE: 20210510
